FAERS Safety Report 4937032-0 (Version None)
Quarter: 2006Q1

REPORT INFORMATION
  Report Type: 
  Country: None (occurrence: None)
  Receive Date: 20060309
  Receipt Date: 20060306
  Transmission Date: 20060701
  Serious: Yes (Death)
  Sender: FDA-Public Use
  Company Number: FR-SANOFI-SYNTHELABO-F01200600662

PATIENT
  Sex: Male
  Weight: 72 kg

DRUGS (11)
  1. OXALIPLATIN [Suspect]
     Indication: OESOPHAGEAL CARCINOMA
     Route: 042
     Dates: start: 20060207, end: 20060207
  2. FLUOROURACIL [Suspect]
     Route: 042
     Dates: start: 20060207, end: 20060208
  3. LEUCOVORIN CALCIUM [Suspect]
     Route: 042
     Dates: start: 20060207, end: 20060208
  4. RADIOTHERAPY [Concomitant]
     Indication: OESOPHAGEAL CARCINOMA
     Dosage: TOTAL DOSE OF FRACTION ADMINISTERED BEFORE SAE: 40
     Route: 050
     Dates: start: 20051226, end: 20051226
  5. CELECTOL [Concomitant]
     Indication: HYPERTENSION
  6. CIBADREX [Concomitant]
     Indication: HYPERTENSION
  7. PHYSIOTENS [Concomitant]
     Indication: HYPERTENSION
  8. KEAL [Concomitant]
  9. EFFERALGAN CODEINE [Concomitant]
  10. DURAGESIC-100 [Concomitant]
  11. SONDALIS ISO [Concomitant]

REACTIONS (1)
  - SUDDEN DEATH [None]
